FAERS Safety Report 15640905 (Version 3)
Quarter: 2018Q4

REPORT INFORMATION
  Report Type: Report from Study
  Country: US (occurrence: US)
  Receive Date: 20181120
  Receipt Date: 20181221
  Transmission Date: 20190205
  Serious: Yes (Death, Life-Threatening, Hospitalization, Other)
  Sender: FDA-Public Use
  Company Number: US-ACTELION-A-US2018-175231

PATIENT
  Age: 65 Year
  Sex: Male

DRUGS (3)
  1. REMODULIN [Concomitant]
     Active Substance: TREPROSTINIL
     Dosage: UNK
     Dates: start: 201807
  2. OPSUMIT [Suspect]
     Active Substance: MACITENTAN
     Indication: PULMONARY ARTERIAL HYPERTENSION
     Dosage: UNK
     Route: 048
     Dates: start: 20150123, end: 20181125
  3. TORSEMIDE. [Concomitant]
     Active Substance: TORSEMIDE
     Dosage: 80 MG, UNK

REACTIONS (31)
  - Right ventricular dysfunction [Unknown]
  - Dyspnoea [Recovered/Resolved]
  - Nausea [Recovered/Resolved]
  - Oliguria [Recovered/Resolved with Sequelae]
  - Mental disorder [Recovered/Resolved with Sequelae]
  - Fluid retention [Recovered/Resolved with Sequelae]
  - Acute respiratory failure [Fatal]
  - Cardiac failure acute [Fatal]
  - Pericardial effusion [Unknown]
  - Hypotension [Unknown]
  - Acute kidney injury [Recovered/Resolved]
  - Dizziness [Recovered/Resolved]
  - Cardiac ventricular disorder [Recovered/Resolved]
  - Blood creatinine abnormal [Recovered/Resolved]
  - Melaena [Recovered/Resolved]
  - Abdominal pain [Recovered/Resolved]
  - Fatigue [Recovered/Resolved with Sequelae]
  - Haemodynamic instability [Unknown]
  - Pleural effusion [Unknown]
  - Retching [Recovered/Resolved]
  - Pancreatitis acute [Recovered/Resolved]
  - Tremor [Not Recovered/Not Resolved]
  - Procalcitonin increased [Recovered/Resolved with Sequelae]
  - Lung infiltration [Recovered/Resolved with Sequelae]
  - Pulmonary hypertension [Fatal]
  - Weight increased [Not Recovered/Not Resolved]
  - Thrombocytopenia [Recovered/Resolved with Sequelae]
  - Hypoxia [Unknown]
  - Diarrhoea [Recovered/Resolved]
  - Cellulitis [Recovered/Resolved]
  - Renal impairment [Recovered/Resolved with Sequelae]

NARRATIVE: CASE EVENT DATE: 20180622
